FAERS Safety Report 25841491 (Version 2)
Quarter: 2025Q4

REPORT INFORMATION
  Report Type: Spontaneous
  Country: EU (occurrence: EU)
  Receive Date: 20250924
  Receipt Date: 20251003
  Transmission Date: 20260117
  Serious: Yes (Death, Other)
  Sender: SANDOZ
  Company Number: None

PATIENT
  Age: 80 Year
  Sex: Male
  Weight: 63 kg

DRUGS (13)
  1. APIXABAN [Suspect]
     Active Substance: APIXABAN
     Indication: Product used for unknown indication
     Dosage: 5 MG, QD (MORNING)
     Route: 065
     Dates: start: 20250822
  2. BROMAZEPAM [Suspect]
     Active Substance: BROMAZEPAM
     Indication: Depression
     Dosage: UNK (LEXOMIL)
     Route: 048
     Dates: start: 20250822, end: 20250825
  3. ZUCLOPENTHIXOL [Suspect]
     Active Substance: ZUCLOPENTHIXOL
     Indication: Schizophrenia
     Dosage: EVENING TREATMENT
     Route: 048
     Dates: start: 20250822, end: 20250825
  4. LANSOPRAZOLE [Suspect]
     Active Substance: LANSOPRAZOLE
     Indication: Dyspepsia
     Dosage: UNK
     Route: 048
     Dates: start: 20250822, end: 20250825
  5. TROPATEPINE HYDROCHLORIDE [Suspect]
     Active Substance: TROPATEPINE HYDROCHLORIDE
     Indication: Parkinson^s disease
     Dosage: UNK
     Route: 048
     Dates: start: 20250822, end: 20250825
  6. MIRTAZAPINE [Suspect]
     Active Substance: MIRTAZAPINE
     Indication: Depression
     Dosage: UNK
     Route: 048
     Dates: start: 20250822, end: 20250825
  7. PAROXETINE [Suspect]
     Active Substance: PAROXETINE
     Indication: Product used for unknown indication
     Dosage: EVENING
     Route: 065
     Dates: start: 20250822
  8. QUETIAPINE [Suspect]
     Active Substance: QUETIAPINE
     Indication: Depression
     Dosage: UNK (SEROQUEL)
     Route: 048
     Dates: start: 20250822, end: 20250825
  9. ATENOLOL [Concomitant]
     Active Substance: ATENOLOL
     Indication: Product used for unknown indication
     Dosage: 50 MG, QD
     Route: 065
  10. LERCANIDIPINE [Concomitant]
     Active Substance: LERCANIDIPINE
     Indication: Product used for unknown indication
     Dosage: 10 MG, QD
     Route: 065
  11. PARAFFIN [Concomitant]
     Active Substance: PARAFFIN
     Indication: Product used for unknown indication
     Route: 065
  12. TIAPRIDE [Concomitant]
     Active Substance: TIAPRIDE
     Indication: Product used for unknown indication
     Dosage: 100 MG (MORNING)
     Route: 065
     Dates: start: 20250822
  13. VALPROIC ACID [Concomitant]
     Active Substance: VALPROIC ACID
     Indication: Product used for unknown indication
     Dosage: 500 MG
     Route: 065
     Dates: start: 20250822

REACTIONS (8)
  - Depressed level of consciousness [Fatal]
  - Medication error [Fatal]
  - Hypothermia [Unknown]
  - Haemorrhage [Unknown]
  - Scrotal irritation [Unknown]
  - Muscular weakness [Unknown]
  - Diarrhoea [Unknown]
  - Hallucination [Unknown]

NARRATIVE: CASE EVENT DATE: 20250822
